FAERS Safety Report 7216021-X (Version None)
Quarter: 2011Q1

REPORT INFORMATION
  Report Type: 
  Country: None (occurrence: None)
  Receive Date: 20110107
  Receipt Date: 20110104
  Transmission Date: 20110831
  Serious: Yes (Death, Hospitalization)
  Sender: FDA-Public Use
  Company Number: CZ-JNJFOC-20101208057

PATIENT
  Sex: Female
  Weight: 85 kg

DRUGS (18)
  1. VEROSPIRON [Concomitant]
  2. GOLIMUMAB [Suspect]
     Indication: RHEUMATOID ARTHRITIS
     Route: 058
  3. ACIDUM FOLICUM [Concomitant]
     Indication: RHEUMATOID ARTHRITIS
  4. TENAXUM [Concomitant]
  5. GOLIMUMAB [Suspect]
     Route: 058
  6. MILURIT [Suspect]
     Indication: PRODUCT USED FOR UNKNOWN INDICATION
  7. BLESSIN PLUS H [Concomitant]
  8. METHOTREXATE [Concomitant]
     Indication: RHEUMATOID ARTHRITIS
  9. MEDROL [Concomitant]
     Indication: RHEUMATOID ARTHRITIS
  10. LOZAR [Concomitant]
  11. HYPOTYLIN [Concomitant]
  12. SORBIFER [Concomitant]
  13. GOLIMUMAB [Suspect]
     Route: 058
  14. ATORVASTATIN CALCIUM [Concomitant]
     Indication: PRODUCT USED FOR UNKNOWN INDICATION
  15. FURON [Concomitant]
  16. ORTANOL [Concomitant]
     Indication: GASTRITIS
  17. AMLODIPINE BESYLATE [Concomitant]
  18. LOKREN [Concomitant]

REACTIONS (3)
  - RENAL FAILURE ACUTE [None]
  - DERMATITIS ALLERGIC [None]
  - CARDIOPULMONARY FAILURE [None]
